FAERS Safety Report 8392816-4 (Version None)
Quarter: 2012Q2

REPORT INFORMATION
  Report Type: 
  Country: None (occurrence: None)
  Receive Date: 20120529
  Receipt Date: 20120516
  Transmission Date: 20120825
  Serious: Yes (Other)
  Sender: FDA-Public Use
  Company Number: US-ELI_LILLY_AND_COMPANY-US201112004559

PATIENT
  Sex: Female

DRUGS (15)
  1. NAMENDA [Concomitant]
     Dosage: 5 MG, QD
  2. ASPIRIN [Concomitant]
     Dosage: 81 MG, QD
  3. FUROSEMIDE [Concomitant]
     Dosage: 20 MG, QD
  4. NITROGLYCERIN [Concomitant]
     Indication: CHEST PAIN
     Dosage: 0.4 MG, PRN
  5. TOPROL-XL [Concomitant]
     Dosage: 50 MG, QD
  6. NORVASC [Concomitant]
     Dosage: 5 MG, QD
  7. FORTEO [Suspect]
     Dosage: 20 UG, QD
     Route: 065
  8. ADVAIR DISKUS 100/50 [Concomitant]
  9. VITAMIN D2 [Concomitant]
     Dosage: 3000 IU, UNKNOWN
  10. FORTEO [Suspect]
     Indication: OSTEOPOROSIS
     Dosage: 20 UG, QD
     Route: 065
     Dates: start: 20110624
  11. LIPITOR [Concomitant]
     Dosage: 20 MG, QD
  12. ALLOPURINOL [Concomitant]
     Dosage: 300 MG, QD
  13. THEOPHYLLINE [Concomitant]
     Dosage: 300 MG, QD
  14. MECLIZINE [Concomitant]
     Indication: DIZZINESS
     Dosage: 25 MG, PRN
  15. SAXAGLIPTIN [Concomitant]
     Dosage: 2.5 MG, QD

REACTIONS (1)
  - HEART RATE DECREASED [None]
